FAERS Safety Report 5131403-8 (Version None)
Quarter: 2006Q4

REPORT INFORMATION
  Report Type: 
  Country: None (occurrence: None)
  Receive Date: 20061020
  Receipt Date: 20061017
  Transmission Date: 20070319
  Serious: Yes (Death, Hospitalization)
  Sender: FDA-Public Use
  Company Number: US-GLAXOSMITHKLINE-A0624122A

PATIENT
  Age: 55 Year
  Sex: Female

DRUGS (12)
  1. SEREVENT [Suspect]
     Indication: CHRONIC OBSTRUCTIVE PULMONARY DISEASE
     Dosage: 2PUFF PER DAY
     Route: 055
     Dates: end: 20060302
  2. FLOVENT [Suspect]
     Indication: CHRONIC OBSTRUCTIVE PULMONARY DISEASE
     Dosage: 2PUFF TWICE PER DAY
     Route: 055
     Dates: end: 20060302
  3. ADVAIR HFA [Suspect]
     Indication: ASTHMA
     Route: 055
     Dates: start: 19990101
  4. COMBIVENT [Concomitant]
  5. LISINOPRIL [Concomitant]
  6. PREDNISONE TAB [Concomitant]
  7. FLEXERIL [Concomitant]
  8. ZANTAC [Concomitant]
     Dates: end: 20060218
  9. BACTRIM [Concomitant]
     Dates: start: 20050929
  10. CYCLOBENZAPRINE [Concomitant]
  11. OMNICEF [Concomitant]
  12. PROTONIX [Concomitant]
     Dates: start: 20060218

REACTIONS (22)
  - ACUTE MYOCARDIAL INFARCTION [None]
  - ASTHMA [None]
  - ATELECTASIS [None]
  - BODY TEMPERATURE DECREASED [None]
  - BRUXISM [None]
  - CARDIAC ARREST [None]
  - CHEST DISCOMFORT [None]
  - CHEST PAIN [None]
  - CHRONIC OBSTRUCTIVE PULMONARY DISEASE [None]
  - COUGH [None]
  - DEPRESSED LEVEL OF CONSCIOUSNESS [None]
  - DIZZINESS [None]
  - DYSPNOEA [None]
  - EMPHYSEMA [None]
  - HYPERTENSION [None]
  - MYDRIASIS [None]
  - PERIPHERAL COLDNESS [None]
  - RESPIRATORY DISTRESS [None]
  - RESPIRATORY TRACT CONGESTION [None]
  - SPEECH DISORDER [None]
  - TACHYCARDIA [None]
  - VENTRICULAR FIBRILLATION [None]
